FAERS Safety Report 5809905-8 (Version None)
Quarter: 2008Q3

REPORT INFORMATION
  Report Type: 
  Country: None (occurrence: None)
  Receive Date: 20080715
  Receipt Date: 20080701
  Transmission Date: 20090109
  Serious: Yes (Death, Hospitalization, Disabling)
  Sender: FDA-Public Use
  Company Number: FR-JNJFOC-20080702937

PATIENT
  Age: 64 Year
  Sex: Female

DRUGS (9)
  1. TOPALGIC [Suspect]
     Route: 048
  2. TOPALGIC [Suspect]
     Indication: NECK PAIN
     Route: 048
  3. SU 11248 [Suspect]
     Route: 048
  4. SU 11248 [Suspect]
     Indication: BREAST CANCER
     Route: 048
  5. ACUPAN [Suspect]
     Indication: NECK PAIN
     Route: 042
  6. DEROXAT [Concomitant]
     Indication: ANXIETY
  7. RIVOTRIL [Concomitant]
  8. AMITRIPTYLINE HYDROCHLORIDE [Concomitant]
  9. LEVOTHYROXINE SODIUM [Concomitant]

REACTIONS (8)
  - AGITATION [None]
  - CONFUSIONAL STATE [None]
  - DEATH [None]
  - DYSPNOEA [None]
  - DYSPNOEA EXERTIONAL [None]
  - HALLUCINATION, VISUAL [None]
  - HYPERTENSION [None]
  - NECK PAIN [None]
